FAERS Safety Report 8831949 (Version 2)
Quarter: 2012Q4

REPORT INFORMATION
  Report Type: Report from Study
  Country: FR (occurrence: FR)
  Receive Date: 20121009
  Receipt Date: 20121018
  Transmission Date: 20130627
  Serious: Yes (Hospitalization)
  Sender: FDA-Public Use
  Company Number: FR-PFIZER INC-2012245940

PATIENT
  Age: 14 Year
  Sex: Male
  Weight: 33.3 kg

DRUGS (9)
  1. DOXORUBICIN HCL [Suspect]
     Indication: SARCOMA
     Dosage: 30 mg, twice in 21 days
     Route: 042
     Dates: start: 20090729
  2. VINCRISTINE SULFATE [Suspect]
     Indication: SARCOMA
     Dosage: 19 mg, thrice in 21 days
     Route: 042
     Dates: start: 20090725
  3. IFOSFAMIDE [Suspect]
     Indication: SARCOMA
     Dosage: 3.8 g, twice in 21 days
     Route: 042
     Dates: start: 20090729
  4. ACTINOMYCIN D [Suspect]
     Indication: SARCOMA
     Dosage: 1.9 mg, once every 21 days
     Route: 042
     Dates: start: 20090729
  5. NEURONTIN [Concomitant]
     Dosage: 300 mg, 3x/day
     Dates: start: 20090729
  6. LAROXYL [Concomitant]
     Dosage: 15 mg, 1x/day
     Dates: start: 20090729
  7. ORAMORPH [Concomitant]
     Dosage: 4 to 16 drops per day
     Dates: start: 20090819, end: 20090930
  8. EMEND [Concomitant]
     Dosage: 30 - 125 mg per day
     Dates: start: 20090820, end: 20090911
  9. DUROGESIC [Concomitant]
     Dosage: 1.2 mg in  3 days
     Dates: start: 20090912, end: 20090930

REACTIONS (3)
  - Febrile bone marrow aplasia [Recovered/Resolved]
  - Gastroenteritis bacterial [Recovered/Resolved]
  - Device related infection [Recovered/Resolved]
